FAERS Safety Report 7071760-9 (Version None)
Quarter: 2010Q4

REPORT INFORMATION
  Report Type: 
  Country: None (occurrence: None)
  Receive Date: 20101029
  Receipt Date: 20091016
  Transmission Date: 20110411
  Serious: No
  Sender: FDA-Public Use
  Company Number: A0812211A

PATIENT
  Age: 20 Year
  Sex: Female

DRUGS (7)
  1. ADVAIR DISKUS 100/50 [Suspect]
     Indication: ASTHMA
     Dosage: 1PUFF TWICE PER DAY
     Route: 055
     Dates: start: 20040101
  2. ALLEGRA [Concomitant]
  3. FLONASE [Concomitant]
  4. QVAR 40 [Concomitant]
  5. SINGULAIR [Concomitant]
  6. BIRTH CONTROL [Concomitant]
  7. ALBUTEROL [Concomitant]

REACTIONS (1)
  - NASOPHARYNGITIS [None]
